FAERS Safety Report 10840567 (Version 1)
Quarter: 2015Q1

REPORT INFORMATION
  Report Type: Report from Study
  Country: US (occurrence: US)
  Receive Date: 20150220
  Receipt Date: 20150220
  Transmission Date: 20150721
  Serious: No
  Sender: FDA-Public Use
  Company Number: US-ABBVIE-14P-163-1238986-00

PATIENT
  Age: 21 Year
  Sex: Male
  Weight: 66.28 kg

DRUGS (3)
  1. HUMIRA [Suspect]
     Active Substance: ADALIMUMAB
     Indication: JUVENILE IDIOPATHIC ARTHRITIS
     Dates: end: 201312
  2. HUMIRA [Suspect]
     Active Substance: ADALIMUMAB
     Dates: start: 201405
  3. PREDNISONE. [Concomitant]
     Active Substance: PREDNISONE
     Indication: JUVENILE IDIOPATHIC ARTHRITIS

REACTIONS (3)
  - Arthralgia [Recovering/Resolving]
  - Migraine [Recovering/Resolving]
  - Therapeutic response unexpected [Unknown]

NARRATIVE: CASE EVENT DATE: 201312
